FAERS Safety Report 5467647-5 (Version None)
Quarter: 2007Q3

REPORT INFORMATION
  Report Type: 
  Country: None (occurrence: None)
  Receive Date: 20070905
  Receipt Date: 20070822
  Transmission Date: 20080115
  Serious: Yes (Hospitalization)
  Sender: FDA-Public Use
  Company Number: 2007-163251-NL

PATIENT
  Age: 57 Year
  Sex: Male

DRUGS (1)
  1. TICE BCG [Suspect]
     Indication: BLADDER CANCER
     Dosage: CFU INTRAVESICAL, 3 TREATMENTS
     Route: 043
     Dates: start: 20050101, end: 20050101

REACTIONS (5)
  - CARDIAC OPERATION [None]
  - HEPATITIS [None]
  - LUNG DISORDER [None]
  - SPLEEN DISORDER [None]
  - TUBERCULOSIS [None]
